FAERS Safety Report 8114268-1 (Version None)
Quarter: 2012Q1

REPORT INFORMATION
  Report Type: 
  Country: None (occurrence: None)
  Receive Date: 20120206
  Receipt Date: 20120126
  Transmission Date: 20120608
  Serious: Yes (Hospitalization)
  Sender: FDA-Public Use
  Company Number: US-BIOGENIDEC-2012BI002670

PATIENT
  Age: 53 Year
  Sex: Female

DRUGS (5)
  1. TYSABRI [Suspect]
     Indication: MULTIPLE SCLEROSIS
     Route: 042
     Dates: start: 20100801
  2. LISINOPRIL [Concomitant]
     Indication: HYPERTENSION
  3. METOPROLOL SUCCINATE [Concomitant]
     Indication: HYPERTENSION
  4. NEURONTIN [Concomitant]
     Indication: MULTIPLE SCLEROSIS
  5. VERAPAMIL [Concomitant]
     Indication: HYPERTENSION

REACTIONS (11)
  - DEPRESSION [None]
  - BLOOD CHOLESTEROL INCREASED [None]
  - GAIT DISTURBANCE [None]
  - MULTIPLE SCLEROSIS RELAPSE [None]
  - BLOOD PRESSURE INCREASED [None]
  - LIGAMENT SPRAIN [None]
  - PHARYNGEAL DISORDER [None]
  - MEMORY IMPAIRMENT [None]
  - ANGINA PECTORIS [None]
  - SEXUAL DYSFUNCTION [None]
  - FALL [None]
